FAERS Safety Report 8133440-8 (Version None)
Quarter: 2012Q1

REPORT INFORMATION
  Report Type: 
  Country: None (occurrence: None)
  Receive Date: 20120213
  Receipt Date: 20120131
  Transmission Date: 20120608
  Serious: Yes (Other)
  Sender: FDA-Public Use
  Company Number: NO-TEVA-322027ISR

PATIENT
  Age: 53 Year
  Sex: Male

DRUGS (1)
  1. TRAMADOL HCL [Suspect]

REACTIONS (4)
  - DEPRESSION [None]
  - AMNESIA [None]
  - DEPERSONALISATION [None]
  - DISORIENTATION [None]
